FAERS Safety Report 6245976-5 (Version None)
Quarter: 2009Q2

REPORT INFORMATION
  Report Type: 
  Country: None (occurrence: None)
  Receive Date: 20090626
  Receipt Date: 20080910
  Transmission Date: 20091009
  Serious: No
  Sender: FDA-Public Use
  Company Number: A0748016A

PATIENT
  Sex: Male

DRUGS (1)
  1. IMITREX [Suspect]
     Indication: MIGRAINE
     Dosage: 50MG UNKNOWN
     Route: 048

REACTIONS (1)
  - MIGRAINE [None]
